FAERS Safety Report 12481858 (Version 13)
Quarter: 2018Q3

REPORT INFORMATION
  Report Type: Report from Study
  Country: None (occurrence: US)
  Receive Date: 20160620
  Receipt Date: 20180731
  Transmission Date: 20181010
  Serious: Yes (Hospitalization, Other)
  Sender: FDA-Public Use
  Company Number: US-ABBVIE-16K-163-1651736-00

PATIENT
  Age: 69 Year
  Sex: Male
  Weight: 79 kg

DRUGS (21)
  1. PREDNISONE. [Concomitant]
     Active Substance: PREDNISONE
     Indication: PRODUCT USED FOR UNKNOWN INDICATION
  2. METOPROLOL. [Concomitant]
     Active Substance: METOPROLOL
     Indication: PRODUCT USED FOR UNKNOWN INDICATION
  3. ASACOL [Concomitant]
     Active Substance: MESALAMINE
     Indication: PRODUCT USED FOR UNKNOWN INDICATION
  4. LOPERAMIDE [Concomitant]
     Active Substance: LOPERAMIDE
     Indication: PRODUCT USED FOR UNKNOWN INDICATION
  5. VITAMIN D [Concomitant]
     Active Substance: CHOLECALCIFEROL
     Indication: VITAMIN SUPPLEMENTATION
  6. VITAMIN D [Concomitant]
     Active Substance: CHOLECALCIFEROL
     Indication: VITAMIN SUPPLEMENTATION
  7. HUMIRA [Suspect]
     Active Substance: ADALIMUMAB
     Indication: COLITIS ULCERATIVE
     Route: 058
     Dates: start: 2010, end: 2010
  8. OMEPRAZOLE. [Concomitant]
     Active Substance: OMEPRAZOLE
     Indication: PRODUCT USED FOR UNKNOWN INDICATION
  9. PROBIOTIC [Concomitant]
     Active Substance: PROBIOTICS NOS
     Indication: PRODUCT USED FOR UNKNOWN INDICATION
  10. HUMIRA [Suspect]
     Active Substance: ADALIMUMAB
     Route: 058
     Dates: start: 2016, end: 201801
  11. HUMIRA [Suspect]
     Active Substance: ADALIMUMAB
     Route: 058
     Dates: start: 2018
  12. VITAMIN E [Concomitant]
     Active Substance: .ALPHA.-TOCOPHEROL
     Indication: VITAMIN SUPPLEMENTATION
  13. HUMIRA [Suspect]
     Active Substance: ADALIMUMAB
     Route: 058
     Dates: start: 2010, end: 201512
  14. OXYCODONE [Concomitant]
     Active Substance: OXYCODONE
     Indication: PRODUCT USED FOR UNKNOWN INDICATION
  15. LISINOPRIL. [Concomitant]
     Active Substance: LISINOPRIL
     Indication: PRODUCT USED FOR UNKNOWN INDICATION
  16. FENTANYL. [Suspect]
     Active Substance: FENTANYL
     Indication: INTESTINAL RESECTION
     Route: 065
  17. VITAMIN B12 [Concomitant]
     Active Substance: CYANOCOBALAMIN
     Indication: PRODUCT USED FOR UNKNOWN INDICATION
  18. FOLIC ACID. [Concomitant]
     Active Substance: FOLIC ACID
     Indication: VITAMIN SUPPLEMENTATION
  19. CANASA [Concomitant]
     Active Substance: MESALAMINE
     Indication: PRODUCT USED FOR UNKNOWN INDICATION
  20. VITAMIN C [Concomitant]
     Active Substance: ASCORBIC ACID
     Indication: PRODUCT USED FOR UNKNOWN INDICATION
  21. HUMIRA [Suspect]
     Active Substance: ADALIMUMAB
     Indication: CROHN^S DISEASE
     Route: 058
     Dates: start: 2009, end: 2010

REACTIONS (39)
  - Post procedural fistula [Recovered/Resolved]
  - Drug ineffective [Recovered/Resolved]
  - Large intestinal obstruction [Unknown]
  - Tooth infection [Recovering/Resolving]
  - Infectious colitis [Unknown]
  - Procedural complication [Recovered/Resolved]
  - Tremor [Recovered/Resolved with Sequelae]
  - Crohn^s disease [Recovered/Resolved]
  - Weight decreased [Not Recovered/Not Resolved]
  - Hallucination [Recovered/Resolved]
  - Stress [Unknown]
  - Intestinal anastomosis complication [Not Recovered/Not Resolved]
  - Periprocedural myocardial infarction [Recovering/Resolving]
  - Diarrhoea [Not Recovered/Not Resolved]
  - Fistula of small intestine [Recovered/Resolved]
  - Intestinal anastomosis [Recovering/Resolving]
  - Tooth fracture [Recovering/Resolving]
  - Pneumonia [Recovered/Resolved]
  - Frequent bowel movements [Not Recovered/Not Resolved]
  - Proctitis [Not Recovered/Not Resolved]
  - Drug effect incomplete [Not Recovered/Not Resolved]
  - Impaired healing [Not Recovered/Not Resolved]
  - Crohn^s disease [Recovering/Resolving]
  - Fatigue [Not Recovered/Not Resolved]
  - Intestinal fistula [Recovering/Resolving]
  - Abscess intestinal [Recovering/Resolving]
  - Gastrointestinal haemorrhage [Recovered/Resolved]
  - Pneumonia staphylococcal [Recovered/Resolved]
  - Large intestinal obstruction [Recovered/Resolved]
  - Procedural intestinal perforation [Recovering/Resolving]
  - Skin discolouration [Not Recovered/Not Resolved]
  - Abscess intestinal [Recovered/Resolved]
  - Post procedural infection [Not Recovered/Not Resolved]
  - Cardiac arrest [Recovered/Resolved]
  - Skin disorder [Unknown]
  - Crohn^s disease [Recovered/Resolved]
  - Dry skin [Not Recovered/Not Resolved]
  - Pneumonia staphylococcal [Recovered/Resolved]
  - Squamous cell carcinoma [Not Recovered/Not Resolved]

NARRATIVE: CASE EVENT DATE: 2010
